FAERS Safety Report 7378516-8 (Version None)
Quarter: 2011Q1

REPORT INFORMATION
  Report Type: 
  Country: None (occurrence: None)
  Receive Date: 20110323
  Receipt Date: 20110323
  Transmission Date: 20110831
  Serious: Yes (Life-Threatening)
  Sender: FDA-Public Use
  Company Number: None

PATIENT
  Age: 50 Year
  Sex: Female
  Weight: 56.3 kg

DRUGS (1)
  1. DIOVAN [Suspect]
     Indication: HYPERTENSION
     Dosage: ONE TABLET TWICE A DAY PO
     Route: 048
     Dates: start: 20100301, end: 20110321

REACTIONS (6)
  - EYE DISORDER [None]
  - MYALGIA [None]
  - BLOOD PRESSURE DECREASED [None]
  - FATIGUE [None]
  - CONDITION AGGRAVATED [None]
  - MUSCLE SPASMS [None]
